FAERS Safety Report 17032929 (Version 1)
Quarter: 2019Q4

REPORT INFORMATION
  Report Type: Spontaneous
  Country: CA (occurrence: CA)
  Receive Date: 20191114
  Receipt Date: 20191114
  Transmission Date: 20200122
  Serious: Yes (Death, Hospitalization)
  Sender: FDA-Public Use
  Company Number: CA-TEVA-2019-CA-1136419

PATIENT
  Age: 68 Year
  Sex: Female
  Weight: 90 kg

DRUGS (18)
  1. TOLOXIN [DIGOXIN] [Concomitant]
  2. VITAMIN D [Concomitant]
     Active Substance: VITAMIN D NOS
  3. XARELTO [Concomitant]
     Active Substance: RIVAROXABAN
  4. PREDNISONE. [Suspect]
     Active Substance: PREDNISONE
     Indication: GOUT
     Route: 048
  5. METHOTREXATE. [Concomitant]
     Active Substance: METHOTREXATE
     Route: 058
  6. PREDNISONE. [Suspect]
     Active Substance: PREDNISONE
     Indication: RHEUMATOID ARTHRITIS
     Route: 065
  7. INFLIXIMAB [Suspect]
     Active Substance: INFLIXIMAB
     Indication: RHEUMATOID ARTHRITIS
     Route: 042
  8. ATORVASTATIN [Concomitant]
     Active Substance: ATORVASTATIN
  9. PANTOPRAZOLE [Concomitant]
     Active Substance: PANTOPRAZOLE
  10. TRAMADOL. [Concomitant]
     Active Substance: TRAMADOL
  11. ZINC CITRATE [Concomitant]
     Active Substance: ZINC CITRATE
  12. FUROSEMIDE. [Concomitant]
     Active Substance: FUROSEMIDE
  13. BISOPROLOL [Concomitant]
     Active Substance: BISOPROLOL
  14. NIFEDIPINE. [Concomitant]
     Active Substance: NIFEDIPINE
  15. VALSARTAN. [Concomitant]
     Active Substance: VALSARTAN
  16. PALAFER [Concomitant]
     Active Substance: FERROUS FUMARATE
  17. SYNTHROID [Concomitant]
     Active Substance: LEVOTHYROXINE SODIUM
  18. XELJANZ [Concomitant]
     Active Substance: TOFACITINIB CITRATE
     Route: 048

REACTIONS (2)
  - Product use issue [Fatal]
  - Pneumonia [Fatal]
